FAERS Safety Report 12158947 (Version 1)
Quarter: 2016Q1

REPORT INFORMATION
  Report Type: Spontaneous
  Country: US (occurrence: US)
  Receive Date: 20160308
  Receipt Date: 20160308
  Transmission Date: 20160526
  Serious: No
  Sender: FDA-Public Use
  Company Number: US-JNJFOC-20160222866

PATIENT
  Age: 82 Year
  Sex: Female
  Weight: 74.84 kg

DRUGS (7)
  1. CALCIUM W/MAGNESIUM/ZINC [Concomitant]
     Indication: NUTRITIONAL SUPPLEMENTATION
     Dosage: SINCE YEARS
     Route: 065
  2. VITAMIN-A [Concomitant]
     Active Substance: VITAMIN A
     Indication: NUTRITIONAL SUPPLEMENTATION
     Dosage: SINCE YEARS
     Route: 065
  3. VITAMIN D [Concomitant]
     Active Substance: CHOLECALCIFEROL
     Indication: NUTRITIONAL SUPPLEMENTATION
     Dosage: SINCE YEARS
     Route: 065
  4. TYLENOL 8 HR ARTHRITIS PAIN [Suspect]
     Active Substance: ACETAMINOPHEN
     Route: 048
  5. TYLENOL 8 HR ARTHRITIS PAIN [Suspect]
     Active Substance: ACETAMINOPHEN
     Indication: NEURALGIA
     Dosage: 2 CAPLETS, AS NEEDED, BUT COULD NOT STRETCH IT TO 8 HOURS
     Route: 048
  6. TOCOPHEROL [Concomitant]
     Active Substance: TOCOPHEROL
     Indication: NUTRITIONAL SUPPLEMENTATION
     Dosage: SINCE YEARS
     Route: 065
  7. VITAMIN C [Concomitant]
     Active Substance: ASCORBIC ACID
     Indication: NUTRITIONAL SUPPLEMENTATION
     Dosage: SINCE YEARS
     Route: 065

REACTIONS (3)
  - Product use issue [Unknown]
  - Off label use [Unknown]
  - Drug ineffective for unapproved indication [Unknown]
